FAERS Safety Report 14606248 (Version 1)
Quarter: 2018Q1

REPORT INFORMATION
  Report Type: Spontaneous
  Country: CZ (occurrence: CZ)
  Receive Date: 20180307
  Receipt Date: 20180307
  Transmission Date: 20180509
  Serious: Yes (Other)
  Sender: FDA-Public Use
  Company Number: CZ-CONCORDIA PHARMACEUTICALS INC.-E2B_00010317

PATIENT
  Age: 89 Year
  Sex: Female
  Weight: 44 kg

DRUGS (13)
  1. CORDARONE [Interacting]
     Active Substance: AMIODARONE HYDROCHLORIDE
     Indication: PRODUCT USED FOR UNKNOWN INDICATION
     Dosage: 1-0-0
  2. AIRFLUSAN FORSPIRO 50 MIKROGRAM?/250 MIKROGRAM? [Concomitant]
     Indication: PRODUCT USED FOR UNKNOWN INDICATION
     Dosage: 1-0-1; 50/250
  3. MILURIT 300 [Concomitant]
     Indication: PRODUCT USED FOR UNKNOWN INDICATION
     Dosage: 1-0-0
  4. DIGOXIN. [Suspect]
     Active Substance: DIGOXIN
     Indication: PRODUCT USED FOR UNKNOWN INDICATION
     Dosage: 1-0-0
     Route: 048
  5. DILATREND [Interacting]
     Active Substance: CARVEDILOL
     Indication: PRODUCT USED FOR UNKNOWN INDICATION
     Dosage: 1-0-0
     Route: 048
  6. PENTOMER RETARD 400 MG [Suspect]
     Active Substance: PENTOXIFYLLINE
     Indication: PRODUCT USED FOR UNKNOWN INDICATION
     Dosage: 1-1-1
  7. VEROSPIRON [Interacting]
     Active Substance: SPIRONOLACTONE
     Indication: PRODUCT USED FOR UNKNOWN INDICATION
     Dosage: 1-0-0
  8. DITHIADEN [Concomitant]
     Active Substance: BISULEPIN
     Indication: PRODUCT USED FOR UNKNOWN INDICATION
     Dosage: 0-0-1
  9. ALENDRONAT SANDOZ 70 [Concomitant]
     Indication: OSTEOPOROSIS
     Route: 065
  10. WARFARIN [Concomitant]
     Active Substance: WARFARIN
     Indication: PRODUCT USED FOR UNKNOWN INDICATION
     Dosage: 1-0-0
  11. FURON [Suspect]
     Active Substance: FUROSEMIDE
     Indication: PRODUCT USED FOR UNKNOWN INDICATION
     Dosage: 1/2-0-0
  12. SECATOXIN [Suspect]
     Active Substance: ERGOLOID MESYLATES
     Indication: PRODUCT USED FOR UNKNOWN INDICATION
     Route: 065
  13. SECATOXIN [Suspect]
     Active Substance: ERGOLOID MESYLATES
     Indication: PRODUCT USED FOR UNKNOWN INDICATION
     Dosage: GTT; 20-20-20

REACTIONS (6)
  - Bradycardia [Unknown]
  - Fall [Unknown]
  - Labelled drug-drug interaction medication error [Unknown]
  - Cardioactive drug level increased [Unknown]
  - Hyperkalaemia [Unknown]
  - Hypotension [Unknown]
